FAERS Safety Report 6355685-X (Version None)
Quarter: 2009Q3

REPORT INFORMATION
  Report Type: 
  Country: None (occurrence: None)
  Receive Date: 20090910
  Receipt Date: 20090902
  Transmission Date: 20100115
  Serious: Yes (Hospitalization)
  Sender: FDA-Public Use
  Company Number: 2009AL005807

PATIENT
  Age: 49 Year
  Sex: Female

DRUGS (3)
  1. EPIRUBICIN HCL [Suspect]
  2. PACLITAXEL [Concomitant]
  3. CYCLOPHOSPHAMIDE [Concomitant]

REACTIONS (2)
  - ALANINE AMINOTRANSFERASE INCREASED [None]
  - INFECTION [None]
